FAERS Safety Report 5085186-0 (Version None)
Quarter: 2006Q3

REPORT INFORMATION
  Report Type: 
  Country: None (occurrence: None)
  Receive Date: 20060822
  Receipt Date: 20060811
  Transmission Date: 20061208
  Serious: Yes (Hospitalization, Other)
  Sender: FDA-Public Use
  Company Number: FR-ABBOTT-06P-056-0340649-00

PATIENT
  Sex: Male
  Weight: 56 kg

DRUGS (21)
  1. NORVIR [Suspect]
     Indication: HIV INFECTION
     Route: 048
     Dates: start: 20060601
  2. KALETRA [Suspect]
     Indication: DRUG USE FOR UNKNOWN INDICATION
     Dates: start: 20020401, end: 20020601
  3. ATAZANAVIR [Suspect]
     Indication: HIV INFECTION
     Route: 048
     Dates: start: 20060601
  4. DIDANOSINE [Concomitant]
     Indication: HIV INFECTION
     Route: 048
     Dates: start: 20060601
  5. ABACAVIR [Concomitant]
     Indication: HIV INFECTION
     Dates: start: 20021101
  6. ABACAVIR [Concomitant]
     Route: 048
     Dates: start: 20060601
  7. BACTRIM [Concomitant]
     Indication: DRUG USE FOR UNKNOWN INDICATION
     Route: 048
  8. ANTIHEMOPHILIC FACTOR (HUMAN) [Concomitant]
     Indication: DRUG USE FOR UNKNOWN INDICATION
     Route: 042
  9. CALCIUM COLECALCIFEROL [Concomitant]
     Indication: DRUG USE FOR UNKNOWN INDICATION
  10. LAMIVUDINE [Concomitant]
     Indication: DRUG USE FOR UNKNOWN INDICATION
     Dates: start: 20020401, end: 20020601
  11. LAMIVUDINE [Concomitant]
     Dates: start: 20021101
  12. TENOFOVIR [Concomitant]
     Indication: DRUG USE FOR UNKNOWN INDICATION
     Dates: start: 20020401, end: 20020601
  13. TENOFOVIR [Concomitant]
     Dates: start: 20021101
  14. OMEPRAZOLE [Concomitant]
     Indication: DRUG USE FOR UNKNOWN INDICATION
     Dates: start: 20020401
  15. BROMAZEPAM [Concomitant]
     Indication: DRUG USE FOR UNKNOWN INDICATION
     Dates: start: 20020401
  16. EFAVIRENZ [Concomitant]
     Indication: DRUG USE FOR UNKNOWN INDICATION
     Dates: start: 20021101
  17. SULFAMETHOXAZOLE [Concomitant]
     Indication: DRUG USE FOR UNKNOWN INDICATION
  18. TRIMETHOPRIME [Concomitant]
     Indication: DRUG USE FOR UNKNOWN INDICATION
  19. RIBAVIRIN [Concomitant]
     Indication: DRUG USE FOR UNKNOWN INDICATION
  20. INTERFERON [Concomitant]
     Indication: DRUG USE FOR UNKNOWN INDICATION
  21. ALENDROMATE [Concomitant]
     Indication: DRUG USE FOR UNKNOWN INDICATION
     Dates: start: 20060301

REACTIONS (14)
  - CHOLELITHIASIS [None]
  - DIARRHOEA [None]
  - DRUG EFFECT DECREASED [None]
  - EYE SWELLING [None]
  - HEPATIC CIRRHOSIS [None]
  - HERPES ZOSTER [None]
  - OSTEOPOROSIS [None]
  - PARAESTHESIA [None]
  - PHOTOSENSITIVITY REACTION [None]
  - PSORIASIS [None]
  - RASH [None]
  - SKIN REACTION [None]
  - SWELLING FACE [None]
  - VIRAL LOAD INCREASED [None]
